FAERS Safety Report 4874901-4 (Version None)
Quarter: 2006Q1

REPORT INFORMATION
  Report Type: 
  Country: None (occurrence: None)
  Receive Date: 20060104
  Receipt Date: 20051227
  Transmission Date: 20060701
  Serious: Yes (Hospitalization)
  Sender: FDA-Public Use
  Company Number: S05-USA-04689-01

PATIENT
  Age: 42 Year
  Sex: Female

DRUGS (12)
  1. LEXAPRO [Suspect]
     Indication: ANXIETY
     Dosage: 10 MG QD PO
     Route: 048
     Dates: start: 20050501, end: 20050701
  2. LEXAPRO [Suspect]
     Indication: DEPRESSION
     Dosage: 10 MG QD PO
     Route: 048
     Dates: start: 20050501, end: 20050701
  3. LEXAPRO [Suspect]
     Indication: ANXIETY
     Dosage: 20 MD QD PO
     Route: 048
     Dates: start: 20050701, end: 20051004
  4. LEXAPRO [Suspect]
     Indication: DEPRESSION
     Dosage: 20 MD QD PO
     Route: 048
     Dates: start: 20050701, end: 20051004
  5. LEXAPRO [Suspect]
     Indication: ANXIETY
     Dosage: 10 MG QD PO
     Route: 048
     Dates: start: 20051005, end: 20051001
  6. LEXAPRO [Suspect]
     Indication: DEPRESSION
     Dosage: 10 MG QD PO
     Route: 048
     Dates: start: 20051005, end: 20051001
  7. LEXAPRO [Suspect]
     Indication: ANXIETY
     Dosage: 5 MG QD PO
     Route: 048
     Dates: start: 20051218, end: 20051223
  8. LEXAPRO [Suspect]
     Indication: DEPRESSION
     Dosage: 5 MG QD PO
     Route: 048
     Dates: start: 20051218, end: 20051223
  9. CLARITIN [Suspect]
     Indication: HYPERSENSITIVITY
     Dates: end: 20050101
  10. PRILOSEC [Concomitant]
  11. NIACIN [Concomitant]
  12. CALCIUM (CALCIUM) [Concomitant]

REACTIONS (5)
  - ASTHENOPIA [None]
  - DRY EYE [None]
  - EYE DISORDER [None]
  - EYE IRRITATION [None]
  - FOREIGN BODY SENSATION IN EYES [None]
